FAERS Safety Report 14577449 (Version 1)
Quarter: 2018Q1

REPORT INFORMATION
  Report Type: Spontaneous
  Country: US (occurrence: US)
  Receive Date: 20180226
  Receipt Date: 20180226
  Transmission Date: 20180509
  Serious: Yes (Life-Threatening, Other)
  Sender: FDA-Public Use
  Company Number: None

PATIENT
  Age: 9 Year
  Sex: Female
  Weight: 46.8 kg

DRUGS (5)
  1. MONELUKAST [Suspect]
     Active Substance: MONTELUKAST SODIUM
     Indication: SINUSITIS
     Dosage: ?          QUANTITY:1 TABLET(S);?
     Route: 048
     Dates: start: 20170901, end: 20180206
  2. MONELUKAST [Suspect]
     Active Substance: MONTELUKAST SODIUM
     Indication: INFLAMMATION
     Dosage: ?          QUANTITY:1 TABLET(S);?
     Route: 048
     Dates: start: 20170901, end: 20180206
  3. SMARTY PANTS KIDS DAILY MULTI VITAMINS [Concomitant]
  4. MONELUKAST [Suspect]
     Active Substance: MONTELUKAST SODIUM
     Indication: MULTIPLE ALLERGIES
     Dosage: ?          QUANTITY:1 TABLET(S);?
     Route: 048
     Dates: start: 20170901, end: 20180206
  5. LEVABUTERAOL [Concomitant]

REACTIONS (6)
  - Malaise [None]
  - Depression [None]
  - Insomnia [None]
  - Anxiety [None]
  - Irritability [None]
  - Suicidal ideation [None]

NARRATIVE: CASE EVENT DATE: 20180131
